FAERS Safety Report 4360368-1 (Version None)
Quarter: 2004Q2

REPORT INFORMATION
  Report Type: 
  Country: None (occurrence: None)
  Receive Date: 20040514
  Receipt Date: 20040505
  Transmission Date: 20050107
  Serious: Yes (Other)
  Sender: FDA-Public Use
  Company Number: BE-JNJFOC-20040304149

PATIENT
  Age: 12 Year
  Sex: Female

DRUGS (3)
  1. CISAPRIDE (CISAPRIDE) SUSPENSION [Suspect]
     Indication: GASTROOESOPHAGEAL REFLUX DISEASE
     Dosage: 7.8 MG, 3 IN 1 DAY
     Dates: start: 20030331, end: 20030717
  2. LOSEC (OMEPRAZOLE) [Concomitant]
  3. NEXIUM [Concomitant]

REACTIONS (3)
  - DIARRHOEA [None]
  - DRUG INEFFECTIVE [None]
  - GASTROOESOPHAGEAL REFLUX DISEASE [None]
